FAERS Safety Report 7305527-0 (Version None)
Quarter: 2011Q1

REPORT INFORMATION
  Report Type: 
  Country: None (occurrence: None)
  Receive Date: 20110222
  Receipt Date: 20110215
  Transmission Date: 20110831
  Serious: Yes (Death, Hospitalization)
  Sender: FDA-Public Use
  Company Number: US-ELI_LILLY_AND_COMPANY-US200910008014

PATIENT
  Sex: Female

DRUGS (14)
  1. FORTEO [Suspect]
     Dosage: UNK, UNKNOWN
     Route: 065
     Dates: start: 20091010
  2. COUMADIN [Concomitant]
  3. LIBRAX [Concomitant]
  4. MULTI-VITAMIN [Concomitant]
  5. MIRALAX [Concomitant]
     Dosage: UNK, AS NEEDED
  6. FORTEO [Suspect]
     Indication: OSTEOPOROSIS
     Dosage: UNK, UNKNOWN
     Route: 065
     Dates: start: 20091007
  7. FORTEO [Suspect]
     Dosage: UNK, UNKNOWN
  8. PLAVIX [Concomitant]
  9. DIGOXIN [Concomitant]
  10. SYNTHROID [Concomitant]
  11. CARDIZEM [Concomitant]
  12. VITAMIN D [Concomitant]
  13. PROTONIX [Concomitant]
  14. CALCIUM [Concomitant]

REACTIONS (8)
  - SOMNOLENCE [None]
  - DISORIENTATION [None]
  - PNEUMONIA [None]
  - MULTI-ORGAN FAILURE [None]
  - RENAL FAILURE ACUTE [None]
  - COLITIS ISCHAEMIC [None]
  - FATIGUE [None]
  - HOSPITALISATION [None]
